FAERS Safety Report 5213646-8 (Version None)
Quarter: 2007Q1

REPORT INFORMATION
  Report Type: 
  Country: None (occurrence: None)
  Receive Date: 20070119
  Receipt Date: 20070110
  Transmission Date: 20070707
  Serious: Yes (Hospitalization)
  Sender: FDA-Public Use
  Company Number: BR-PFIZER INC-2007004008

PATIENT
  Sex: Female

DRUGS (6)
  1. DETRUSITOL LA [Suspect]
     Indication: HYPERTONIC BLADDER
     Route: 048
  2. OXYBUTYNIN CHLORIDE [Concomitant]
     Route: 048
  3. ATENOLOL [Concomitant]
     Route: 048
  4. ENALAPRIL MALEATE [Concomitant]
     Route: 048
  5. CALTREN [Concomitant]
     Route: 048
  6. CALCIUM [Concomitant]

REACTIONS (4)
  - CEREBROVASCULAR ACCIDENT [None]
  - DRUG INEFFECTIVE [None]
  - DRY MOUTH [None]
  - NASAL DRYNESS [None]
